FAERS Safety Report 19082521 (Version 2)
Quarter: 2021Q2

REPORT INFORMATION
  Report Type: Spontaneous
  Country: US (occurrence: US)
  Receive Date: 20210401
  Receipt Date: 20210415
  Transmission Date: 20210717
  Serious: Yes (Hospitalization)
  Sender: FDA-Public Use
  Company Number: US-VERTEX PHARMACEUTICALS-2021-005228

PATIENT
  Sex: Female

DRUGS (1)
  1. TRIKAFTA [Suspect]
     Active Substance: ELEXACAFTOR\IVACAFTOR\TEZACAFTOR
     Indication: CYSTIC FIBROSIS
     Dosage: UNK
     Route: 048

REACTIONS (3)
  - Spirometry abnormal [Unknown]
  - Infective pulmonary exacerbation of cystic fibrosis [Unknown]
  - General physical health deterioration [Unknown]
